FAERS Safety Report 8434242-5 (Version None)
Quarter: 2012Q2

REPORT INFORMATION
  Report Type: 
  Country: None (occurrence: None)
  Receive Date: 20120613
  Receipt Date: 20120608
  Transmission Date: 20120825
  Serious: Yes (Death)
  Sender: FDA-Public Use
  Company Number: US-CELGENEUS-163-21880-12061353

PATIENT
  Sex: Male

DRUGS (9)
  1. MILK OF MAGNESIA TAB [Concomitant]
     Route: 065
  2. REVLIMID [Suspect]
     Dosage: 10 MILLIGRAM
     Route: 048
     Dates: start: 20120521
  3. TORSEMIDE [Concomitant]
     Route: 065
  4. DOCUSATE SODIUM [Concomitant]
     Route: 065
  5. DEXAMETHASONE [Concomitant]
     Route: 065
  6. DIOVAN [Concomitant]
     Route: 065
  7. KLOR-CON [Concomitant]
     Route: 065
  8. GLIPIZIDE [Concomitant]
     Route: 065
  9. NEXIUM [Concomitant]
     Route: 065

REACTIONS (3)
  - MULTIPLE MYELOMA [None]
  - SEPTIC SHOCK [None]
  - PNEUMONIA [None]
